FAERS Safety Report 25648963 (Version 2)
Quarter: 2025Q3

REPORT INFORMATION
  Report Type: Spontaneous
  Country: JP (occurrence: JP)
  Receive Date: 20250806
  Receipt Date: 20250912
  Transmission Date: 20251020
  Serious: Yes (Hospitalization)
  Sender: MYLAN
  Company Number: JP-MYLANLABS-2025M1065214

PATIENT
  Age: 4 Decade
  Sex: Male

DRUGS (4)
  1. LYRICA [Suspect]
     Active Substance: PREGABALIN
     Indication: Product used for unknown indication
  2. LYRICA [Suspect]
     Active Substance: PREGABALIN
     Route: 048
  3. LYRICA [Suspect]
     Active Substance: PREGABALIN
     Route: 048
  4. LYRICA [Suspect]
     Active Substance: PREGABALIN

REACTIONS (4)
  - Intentional overdose [Unknown]
  - Depressed level of consciousness [Unknown]
  - Hypoxia [Unknown]
  - Somnolence [Unknown]
